FAERS Safety Report 23500890 (Version 7)
Quarter: 2024Q4

REPORT INFORMATION
  Report Type: Report from Study
  Country: US (occurrence: US)
  Receive Date: 20240208
  Receipt Date: 20241217
  Transmission Date: 20250115
  Serious: Yes (Hospitalization)
  Sender: NOVARTIS
  Company Number: US-002147023-NVSC2024US024837

PATIENT
  Sex: Female

DRUGS (2)
  1. KESIMPTA [Suspect]
     Active Substance: OFATUMUMAB
     Indication: Multiple sclerosis
     Dosage: UNK
     Route: 065
     Dates: end: 20231220
  2. KESIMPTA [Suspect]
     Active Substance: OFATUMUMAB
     Dosage: UNK (ON MAR 7TH)
     Route: 065

REACTIONS (6)
  - Infection [Unknown]
  - Wound infection [Unknown]
  - Pyrexia [Unknown]
  - Wound dehiscence [Unknown]
  - White blood cell count decreased [Recovering/Resolving]
  - T-lymphocyte count increased [Recovering/Resolving]
